FAERS Safety Report 16197178 (Version 1)
Quarter: 2019Q2

REPORT INFORMATION
  Report Type: Spontaneous
  Country: US (occurrence: US)
  Receive Date: 20190415
  Receipt Date: 20190415
  Transmission Date: 20190711
  Serious: No
  Sender: FDA-Public Use
  Company Number: US-PFIZER INC-2019157665

PATIENT
  Age: 50 Year
  Sex: Male
  Weight: 104.3 kg

DRUGS (1)
  1. VIAGRA [Suspect]
     Active Substance: SILDENAFIL CITRATE
     Dosage: 25 MG, AS NEEDED
     Route: 048

REACTIONS (2)
  - Erection increased [Unknown]
  - Ejaculation disorder [Unknown]
